FAERS Safety Report 6759333-6 (Version None)
Quarter: 2010Q2

REPORT INFORMATION
  Report Type: 
  Country: None (occurrence: None)
  Receive Date: 20100607
  Receipt Date: 20100528
  Transmission Date: 20101027
  Serious: Yes (Other)
  Sender: FDA-Public Use
  Company Number: JP-PFIZER INC-2010067792

PATIENT

DRUGS (1)
  1. ATARAX [Suspect]
     Route: 030

REACTIONS (1)
  - RADIAL NERVE PALSY [None]
